FAERS Safety Report 10402448 (Version 1)
Quarter: 2014Q3

REPORT INFORMATION
  Report Type: Spontaneous
  Country: GB (occurrence: GB)
  Receive Date: 20140822
  Receipt Date: 20140822
  Transmission Date: 20150326
  Serious: Yes (Disabling, Other)
  Sender: FDA-Public Use
  Company Number: GB-TEVA-501931ISR

PATIENT
  Age: 51 Year
  Sex: Male
  Weight: 60 kg

DRUGS (8)
  1. PARACETAMOL [Concomitant]
     Active Substance: ACETAMINOPHEN
     Dates: start: 20140701, end: 20140708
  2. HYDROXYZINE [Concomitant]
     Active Substance: HYDROXYZINE\HYDROXYZINE HYDROCHLORIDE
     Dates: start: 20140521
  3. PROPRANOLOL [Concomitant]
     Active Substance: PROPRANOLOL\PROPRANOLOL HYDROCHLORIDE
     Dates: start: 20140521, end: 20140618
  4. AMITRIPTYLINE HYDROCHLORIDE. [Concomitant]
     Active Substance: AMITRIPTYLINE HYDROCHLORIDE
     Dates: start: 20140521, end: 20140529
  5. DIAZEPAM. [Suspect]
     Active Substance: DIAZEPAM
     Dates: start: 20140804
  6. MICROGYNON [Concomitant]
     Active Substance: ETHINYL ESTRADIOL\LEVONORGESTREL ACETATE
     Dates: start: 20140401, end: 20140624
  7. PARACETAMOL [Concomitant]
     Active Substance: ACETAMINOPHEN
     Dates: start: 20140521, end: 20140528
  8. FLUCLOXACILLIN [Concomitant]
     Active Substance: FLUCLOXACILLIN
     Dates: start: 20140513, end: 20140520

REACTIONS (1)
  - Lip swelling [Recovering/Resolving]

NARRATIVE: CASE EVENT DATE: 20140804
